FAERS Safety Report 4373259-7 (Version None)
Quarter: 2004Q2

REPORT INFORMATION
  Report Type: 
  Country: None (occurrence: None)
  Receive Date: 20040608
  Receipt Date: 20040405
  Transmission Date: 20050107
  Serious: Yes (Hospitalization)
  Sender: FDA-Public Use
  Company Number: 2004JP000685

PATIENT
  Age: 54 Year
  Sex: Male
  Weight: 77 kg

DRUGS (3)
  1. SAWACILLIN [Suspect]
     Dosage: 750MG TWICE PER DAY
     Route: 048
     Dates: start: 20020817, end: 20020818
  2. CLARITH [Suspect]
     Dosage: 200MG TWICE PER DAY
     Route: 048
     Dates: start: 20020817, end: 20020818
  3. TAKEPRON [Concomitant]
     Dates: start: 20020817, end: 20020818

REACTIONS (3)
  - DYSPNOEA [None]
  - FEELING HOT [None]
  - TOXIC SKIN ERUPTION [None]
